FAERS Safety Report 11451928 (Version 1)
Quarter: 2015Q3

REPORT INFORMATION
  Report Type: Spontaneous
  Country: AU (occurrence: AU)
  Receive Date: 20150903
  Receipt Date: 20150903
  Transmission Date: 20151125
  Serious: Yes (Other)
  Sender: FDA-Public Use
  Company Number: AU-CIPLA LTD.-2015AU07104

PATIENT

DRUGS (13)
  1. VINCRISTINE [Suspect]
     Active Substance: VINCRISTINE
     Indication: BRAIN STEM GLIOMA
     Dosage: UNK FOR 4 MONTHS
     Route: 065
  2. IRINOTECAN [Suspect]
     Active Substance: IRINOTECAN
     Indication: VOMITING
     Dosage: 125 TO 150 MG/M2 EVERY 2 WEEKS
     Route: 042
  3. BEVACIZUMAB [Suspect]
     Active Substance: BEVACIZUMAB
     Indication: VOMITING
     Dosage: 10 MG/KG, EVERY 2 WEEKS
     Route: 042
  4. IRINOTECAN [Suspect]
     Active Substance: IRINOTECAN
     Indication: DISEASE PROGRESSION
  5. TEMOZOLOMIDE. [Suspect]
     Active Substance: TEMOZOLOMIDE
     Indication: BRAIN STEM GLIOMA
     Dosage: UNK FOR 4 MONTHS
     Route: 065
  6. BEVACIZUMAB [Suspect]
     Active Substance: BEVACIZUMAB
     Indication: DISEASE RECURRENCE
  7. IRINOTECAN [Suspect]
     Active Substance: IRINOTECAN
     Indication: DEVELOPMENTAL DELAY
  8. BEVACIZUMAB [Suspect]
     Active Substance: BEVACIZUMAB
     Indication: DISEASE PROGRESSION
  9. CARBOPLATIN. [Suspect]
     Active Substance: CARBOPLATIN
     Indication: BRAIN STEM GLIOMA
     Dosage: UNK FOR 4 MONTHS
     Route: 065
  10. IRINOTECAN [Suspect]
     Active Substance: IRINOTECAN
     Indication: FAILURE TO THRIVE
     Dosage: 125 TO 150 MG/M2 EVERY 2 WEEKS FOR 24 MONTHS
     Route: 042
  11. IRINOTECAN [Suspect]
     Active Substance: IRINOTECAN
     Indication: DISEASE RECURRENCE
  12. BEVACIZUMAB [Suspect]
     Active Substance: BEVACIZUMAB
     Indication: FAILURE TO THRIVE
     Dosage: 10 MG/KG, EVERY 2 WEEKS FOR 24 MONTHS
     Route: 042
  13. BEVACIZUMAB [Suspect]
     Active Substance: BEVACIZUMAB
     Indication: DEVELOPMENTAL DELAY

REACTIONS (6)
  - Developmental delay [Unknown]
  - Disease recurrence [Not Recovered/Not Resolved]
  - Disease progression [Not Recovered/Not Resolved]
  - Failure to thrive [None]
  - Treatment failure [Unknown]
  - Vomiting [None]
